FAERS Safety Report 24906323 (Version 1)
Quarter: 2025Q1

REPORT INFORMATION
  Report Type: Spontaneous
  Country: US (occurrence: US)
  Receive Date: 20250130
  Receipt Date: 20250130
  Transmission Date: 20250409
  Serious: Yes (Other)
  Sender: PFIZER
  Company Number: US-PFIZER INC-202500021995

PATIENT

DRUGS (3)
  1. DOPAMINE HYDROCHLORIDE [Suspect]
     Active Substance: DOPAMINE HYDROCHLORIDE
  2. AMIODARONE HYDROCHLORIDE [Suspect]
     Active Substance: AMIODARONE HYDROCHLORIDE
  3. LEVOPHED [Suspect]
     Active Substance: NOREPINEPHRINE BITARTRATE

REACTIONS (1)
  - Blood pressure systolic decreased [Unknown]
